FAERS Safety Report 17217147 (Version 1)
Quarter: 2019Q4

REPORT INFORMATION
  Report Type: Spontaneous
  Country: GB (occurrence: GB)
  Receive Date: 20191231
  Receipt Date: 20191231
  Transmission Date: 20200122
  Serious: Yes (Other)
  Sender: FDA-Public Use
  Company Number: GB-TEVA-2019-GB-1159748

PATIENT
  Age: 48 Year
  Sex: Female
  Weight: 65.4 kg

DRUGS (7)
  1. AMITRIPTYLINE [Concomitant]
     Active Substance: AMITRIPTYLINE
     Dosage: TAKE ONE IN THE EVENING. MAXIMUM ONE PER DAY, 10 MG
     Dates: start: 20190930
  2. FLUOXETINE [Suspect]
     Active Substance: FLUOXETINE HYDROCHLORIDE
     Dosage: 20 MG
  3. ZOPICLONE [Concomitant]
     Active Substance: ZOPICLONE
     Dosage: 1-2 AT NIGHT. 7.5MG AND 3.75MG
     Dates: start: 20191025
  4. FERROUS FUMARATE [Concomitant]
     Active Substance: FERROUS FUMARATE
     Dosage: 420 MG
     Dates: start: 20190930
  5. PROPRANOLOL [Concomitant]
     Active Substance: PROPRANOLOL HYDROCHLORIDE
     Indication: ANXIETY
     Dosage: UP TO THREE TIMES A DAY, 40 MG
     Dates: start: 20191024
  6. CYCLIZINE [Concomitant]
     Active Substance: CYCLIZINE
     Indication: NAUSEA
     Dosage: 150 MILLIGRAM DAILY; 1 THREE TIMES DAILY
     Dates: start: 20191028
  7. DIAZEPAM. [Concomitant]
     Active Substance: DIAZEPAM
     Dosage: ONE OR TWO UP TO THREE TIMES A DAY DO NOT TAKE AT NIGHT TIME AT SAME TIME AS ZOPICLON, 2 MG
     Dates: start: 20191105

REACTIONS (4)
  - Anxiety [Recovered/Resolved]
  - Suicidal ideation [Recovered/Resolved]
  - Affective disorder [Recovered/Resolved]
  - Depression [Recovered/Resolved]

NARRATIVE: CASE EVENT DATE: 20191028
